FAERS Safety Report 7145285-6 (Version None)
Quarter: 2010Q4

REPORT INFORMATION
  Report Type: 
  Country: None (occurrence: None)
  Receive Date: 20101208
  Receipt Date: 20100601
  Transmission Date: 20110411
  Serious: Yes (Other)
  Sender: FDA-Public Use
  Company Number: PL-NOVOPROD-309143

PATIENT
  Sex: Female

DRUGS (17)
  1. ACTRAPID [Suspect]
     Indication: TYPE 2 DIABETES MELLITUS
     Dosage: 1 DF, QD
     Dates: start: 19940101
  2. INSULATARD HM [Suspect]
     Dosage: 1 DF, QD
     Dates: start: 19940101
  3. GOPTEN [Suspect]
     Indication: HYPERTENSION
     Dosage: 2 MG, QD
     Route: 048
  4. SPIRONOL [Suspect]
     Indication: HYPERTENSION
     Dosage: 2 MG, QD
     Route: 048
  5. FUROSEMIDE [Suspect]
     Indication: HYPERTENSION
     Dosage: 6 MG, QD
     Route: 048
  6. SIOFOR [Suspect]
     Indication: TYPE 2 DIABETES MELLITUS
     Dosage: 2550 MG, QD
     Route: 048
  7. BIOSOTAL [Suspect]
     Indication: ARRHYTHMIA
     Route: 048
  8. BESTPIRIN [Suspect]
     Indication: CORONARY ARTERY DISEASE
     Route: 048
  9. MILURIT [Suspect]
     Indication: GOUT
     Route: 048
  10. ATORIS                             /01326101/ [Suspect]
     Indication: HYPERCHOLESTEROLAEMIA
     Route: 048
  11. MILGAMMA                           /00089801/ [Suspect]
     Indication: PRODUCT USED FOR UNKNOWN INDICATION
     Route: 048
  12. TRANXENE [Suspect]
     Indication: PRODUCT USED FOR UNKNOWN INDICATION
     Route: 048
  13. KETONAL                            /00321701/ [Suspect]
     Indication: PRODUCT USED FOR UNKNOWN INDICATION
     Route: 048
  14. PENTOXIFYLLINE [Suspect]
     Indication: PRODUCT USED FOR UNKNOWN INDICATION
  15. PLACEBO [Concomitant]
  16. AMOXICILLIN [Concomitant]
     Dosage: UNK
     Dates: start: 20100402, end: 20100416
  17. CLAVULANATE POTASSIUM [Concomitant]
     Dosage: UNK
     Dates: start: 20100402, end: 20100416

REACTIONS (2)
  - CONDITION AGGRAVATED [None]
  - PERIPHERAL VASCULAR DISORDER [None]
